FAERS Safety Report 5895222-7 (Version None)
Quarter: 2008Q3

REPORT INFORMATION
  Report Type: 
  Country: None (occurrence: None)
  Receive Date: 20080924
  Receipt Date: 20080918
  Transmission Date: 20090109
  Serious: Yes (Other)
  Sender: FDA-Public Use
  Company Number: A0748136A

PATIENT
  Age: 53 Year
  Sex: Male

DRUGS (4)
  1. LAMICTAL [Suspect]
     Indication: DEPRESSION
     Dosage: 250MG PER DAY
     Route: 048
     Dates: start: 20060101
  2. LIPITOR [Concomitant]
  3. CRESTOR [Concomitant]
  4. FLOMAX [Concomitant]

REACTIONS (3)
  - AMNESIA [None]
  - DEAFNESS [None]
  - TINNITUS [None]
